FAERS Safety Report 11414560 (Version 1)
Quarter: 2015Q3

REPORT INFORMATION
  Report Type: Spontaneous
  Country: US (occurrence: None)
  Receive Date: 20150824
  Receipt Date: 20150824
  Transmission Date: 20151125
  Serious: Yes (Death, Hospitalization)
  Sender: FDA-Public Use
  Company Number: None

PATIENT
  Age: 16 Year
  Sex: Female
  Weight: 96.9 kg

DRUGS (2)
  1. MITOXANTRONE HYDROCHLORIDE. [Suspect]
     Active Substance: MITOXANTRONE HYDROCHLORIDE
     Dates: end: 20150707
  2. CYTARABINE. [Suspect]
     Active Substance: CYTARABINE
     Dates: end: 20150806

REACTIONS (6)
  - Seizure [None]
  - Hydrocephalus [None]
  - Brain herniation [None]
  - Leukaemic infiltration [None]
  - Blood pressure increased [None]
  - Blood sodium decreased [None]

NARRATIVE: CASE EVENT DATE: 20150802
